FAERS Safety Report 19507338 (Version 1)
Quarter: 2021Q3

REPORT INFORMATION
  Report Type: Spontaneous
  Country: DE (occurrence: DE)
  Receive Date: 20210708
  Receipt Date: 20210708
  Transmission Date: 20211014
  Serious: Yes (Hospitalization)
  Sender: FDA-Public Use
  Company Number: DE-TEVA-2021-DE-1929748

PATIENT
  Age: 72 Year
  Sex: Male

DRUGS (2)
  1. LEVOTHYROXIN?NATRIUM [Concomitant]
     Active Substance: LEVOTHYROXINE SODIUM
     Dosage: 75 MICROGRAM DAILY; 1?0?0?0,
     Route: 048
  2. HYDROCHLOROTHIAZID/LISINOPRIL [Suspect]
     Active Substance: HYDROCHLOROTHIAZIDE\LISINOPRIL
     Dosage: 1 DOSAGE FORMS DAILY; 12.5 | 20 MG, 1?0?0?0
     Route: 048

REACTIONS (5)
  - General physical health deterioration [Unknown]
  - Pyrexia [Unknown]
  - Urinary incontinence [Unknown]
  - Renal impairment [Unknown]
  - Prostatic specific antigen increased [Unknown]
